FAERS Safety Report 11102839 (Version 1)
Quarter: 2015Q2

REPORT INFORMATION
  Report Type: Spontaneous
  Country: GB (occurrence: GB)
  Receive Date: 20150511
  Receipt Date: 20150511
  Transmission Date: 20150821
  Serious: Yes (Other)
  Sender: FDA-Public Use
  Company Number: GB-JNJFOC-20150505052

PATIENT
  Sex: Female

DRUGS (1)
  1. REMICADE [Suspect]
     Active Substance: INFLIXIMAB
     Indication: RHEUMATOID ARTHRITIS
     Route: 042
     Dates: end: 20141019

REACTIONS (5)
  - Hip fracture [Unknown]
  - Lower limb fracture [Unknown]
  - Cellulitis [Unknown]
  - Unevaluable event [Unknown]
  - Malaise [Unknown]
